FAERS Safety Report 23682923 (Version 1)
Quarter: 2024Q1

REPORT INFORMATION
  Report Type: Report from Study
  Country: US (occurrence: US)
  Receive Date: 20240328
  Receipt Date: 20240328
  Transmission Date: 20240410
  Serious: Yes (Death, Life-Threatening, Hospitalization)
  Sender: FDA-Public Use
  Company Number: US-PFIZER INC-202400073542

PATIENT
  Age: 48 Year
  Sex: Male

DRUGS (10)
  1. LEVETIRACETAM [Suspect]
     Active Substance: LEVETIRACETAM
     Indication: Epilepsy
     Dosage: 4000 MG (LOADING DOSE)
  2. LEVETIRACETAM [Suspect]
     Active Substance: LEVETIRACETAM
     Dosage: 2000 MG, 2X/DAY
  3. LEVETIRACETAM [Suspect]
     Active Substance: LEVETIRACETAM
     Dosage: 3000 MG, LOADING DOSE
  4. LORAZEPAM [Suspect]
     Active Substance: LORAZEPAM
     Indication: Epilepsy
     Dosage: 2 MG, SINGLE
  5. LORAZEPAM [Suspect]
     Active Substance: LORAZEPAM
     Dosage: UNK
  6. LACOSAMIDE [Suspect]
     Active Substance: LACOSAMIDE
     Indication: Epilepsy
     Dosage: UNK
  7. FLUCONAZOLE [Concomitant]
     Active Substance: FLUCONAZOLE
     Indication: Meningitis coccidioides
     Dosage: 400 MG, DAILY
  8. FLUCONAZOLE [Concomitant]
     Active Substance: FLUCONAZOLE
     Dosage: 800 MG (IN DIVIDED DOSES)
  9. AMPHOTERICIN B [Concomitant]
     Active Substance: AMPHOTERICIN B
     Indication: Meningitis coccidioides
     Dosage: MAXIMUM DOSE OF 2 MG
     Route: 037
  10. AMPHOTERICIN B [Concomitant]
     Active Substance: AMPHOTERICIN B
     Dosage: 1 MG
     Route: 037

REACTIONS (1)
  - Drug ineffective [Fatal]

NARRATIVE: CASE EVENT DATE: 20230101
